FAERS Safety Report 18887325 (Version 1)
Quarter: 2021Q1

REPORT INFORMATION
  Report Type: Other
  Country: US (occurrence: US)
  Receive Date: 20210212
  Receipt Date: 20210212
  Transmission Date: 20210420
  Serious: Yes (Hospitalization)
  Sender: FDA-Public Use
  Company Number: US-B.BRAUN MEDICAL INC.-2106689

PATIENT
  Age: 68 Year
  Sex: Male

DRUGS (2)
  1. MAGNESIUM SULFATE IN 5%DEXTROSE INJECTION USP 1 GRAM/100ML ? ANDA 2079 [Suspect]
     Active Substance: MAGNESIUM SULFATE
     Indication: ARTHRALGIA
  2. QUININE SULFATE. [Concomitant]
     Active Substance: QUININE SULFATE

REACTIONS (1)
  - Drug ineffective [Recovered/Resolved]
